FAERS Safety Report 8023745-3 (Version None)
Quarter: 2012Q1

REPORT INFORMATION
  Report Type: 
  Country: None (occurrence: None)
  Receive Date: 20120105
  Receipt Date: 20111229
  Transmission Date: 20120608
  Serious: Yes (Death, Life-Threatening, Hospitalization)
  Sender: FDA-Public Use
  Company Number: US-CELGENEUS-163-21880-11123572

PATIENT
  Sex: Female
  Weight: 44.946 kg

DRUGS (7)
  1. REVLIMID [Suspect]
     Dosage: 10 MILLIGRAM
     Route: 048
     Dates: start: 20111020, end: 20111201
  2. ALLOPURINOL [Concomitant]
     Dosage: 300 MILLIGRAM
     Route: 048
  3. ZOVIRAX [Concomitant]
     Dosage: 200 MILLIGRAM
     Route: 048
  4. SYNTHROID [Concomitant]
     Dosage: 137 MICROGRAM
     Route: 048
  5. NEURONTIN [Concomitant]
     Dosage: 600 MILLIGRAM
     Route: 048
  6. PROTONIX [Concomitant]
     Dosage: 40 MILLIGRAM
     Route: 048
  7. VANCOMYCIN [Concomitant]
     Dosage: 250 MILLIGRAM
     Route: 048

REACTIONS (4)
  - CLOSTRIDIAL INFECTION [None]
  - BLOOD CALCIUM INCREASED [None]
  - RENAL FAILURE [None]
  - CHRONIC LYMPHOCYTIC LEUKAEMIA [None]
